FAERS Safety Report 9774428 (Version 1)
Quarter: 2013Q4

REPORT INFORMATION
  Report Type: Spontaneous
  Country: US (occurrence: None)
  Receive Date: 20131219
  Receipt Date: 20131219
  Transmission Date: 20140711
  Serious: No
  Sender: FDA-Public Use
  Company Number: None

PATIENT
  Age: 49 Year
  Sex: Female

DRUGS (1)
  1. ENBREL [Suspect]
     Indication: ILL-DEFINED DISORDER
     Route: 058
     Dates: start: 20130212, end: 20130812

REACTIONS (5)
  - Pneumonia [None]
  - Bronchitis [None]
  - Asthma [None]
  - Cardiac disorder [None]
  - Immune system disorder [None]
